FAERS Safety Report 13927963 (Version 1)
Quarter: 2017Q3

REPORT INFORMATION
  Report Type: Spontaneous
  Country: US (occurrence: None)
  Receive Date: 20170831
  Receipt Date: 20170831
  Transmission Date: 20171127
  Serious: Yes (Life-Threatening, Hospitalization)
  Sender: FDA-Public Use
  Company Number: None

PATIENT
  Age: 61 Year
  Sex: Male

DRUGS (1)
  1. ZYTIGA [Suspect]
     Active Substance: ABIRATERONE ACETATE
     Route: 048

REACTIONS (5)
  - Blood glucose increased [None]
  - Paraesthesia oral [None]
  - Thrombosis [None]
  - Hypercholesterolaemia [None]
  - Paraesthesia [None]

NARRATIVE: CASE EVENT DATE: 20170725
